FAERS Safety Report 13507549 (Version 5)
Quarter: 2017Q4

REPORT INFORMATION
  Report Type: Spontaneous
  Country: TR (occurrence: TR)
  Receive Date: 20170503
  Receipt Date: 20171019
  Transmission Date: 20180320
  Serious: Yes (Other)
  Sender: FDA-Public Use
  Company Number: TR-B.I. PHARMACEUTICALS,INC./RIDGEFIELD-2017-BI-023659

PATIENT
  Age: 96 Year
  Sex: Male

DRUGS (1)
  1. PRADAXA [Suspect]
     Active Substance: DABIGATRAN ETEXILATE MESYLATE
     Indication: ATRIAL FIBRILLATION
     Route: 048
     Dates: end: 20170411

REACTIONS (5)
  - Surgery [Recovered/Resolved]
  - Acute kidney injury [Recovered/Resolved]
  - Nephrostomy [Unknown]
  - Pericardial effusion [Recovered/Resolved]
  - Cellulitis orbital [Recovered/Resolved]

NARRATIVE: CASE EVENT DATE: 20170411
